FAERS Safety Report 20700267 (Version 2)
Quarter: 2022Q2

REPORT INFORMATION
  Report Type: Spontaneous
  Country: US (occurrence: US)
  Receive Date: 20220412
  Receipt Date: 20220418
  Transmission Date: 20220721
  Serious: Yes (Life-Threatening, Hospitalization, Other)
  Sender: FDA-Public Use
  Company Number: US-MLMSERVICE-20220329-3462061-1

PATIENT
  Age: 16 Year
  Sex: Male

DRUGS (3)
  1. LIDOCAINE HYDROCHLORIDE [Suspect]
     Active Substance: LIDOCAINE HYDROCHLORIDE
     Indication: Local anaesthesia
     Dosage: VISCOUS LIDOCAINE 2%
     Route: 061
  2. HURRICAINE [Suspect]
     Active Substance: BENZOCAINE
     Indication: Local anaesthesia
     Dosage: 20% BENZOCAINE (HURRICAINE SPRAY)
     Route: 061
  3. LIDOCAINE\PRILOCAINE [Suspect]
     Active Substance: LIDOCAINE\PRILOCAINE
     Indication: Local anaesthesia
     Dosage: 2.5 % (EUTETIC MIXTURE)
     Route: 061

REACTIONS (2)
  - Respiratory distress [Recovered/Resolved]
  - Methaemoglobinaemia [Recovered/Resolved]
